FAERS Safety Report 7468379-4 (Version None)
Quarter: 2011Q2

REPORT INFORMATION
  Report Type: 
  Country: None (occurrence: None)
  Receive Date: 20110509
  Receipt Date: 20110428
  Transmission Date: 20111010
  Serious: Yes (Hospitalization)
  Sender: FDA-Public Use
  Company Number: US-ASTRAZENECA-2011SE24637

PATIENT
  Age: 55 Year
  Sex: Female

DRUGS (9)
  1. SEROQUEL XR [Suspect]
     Indication: BIPOLAR DISORDER
     Route: 048
     Dates: start: 20011101, end: 20110301
  2. SEROQUEL XR [Suspect]
     Route: 048
     Dates: start: 20110301
  3. LEVEMIR [Concomitant]
  4. LIPITOR [Concomitant]
  5. METFORMIN [Concomitant]
  6. GLYBURIDE [Concomitant]
  7. NORVALOG [Concomitant]
  8. TRILIPIX [Concomitant]
  9. DEPAKOTE [Concomitant]

REACTIONS (11)
  - INSOMNIA [None]
  - GAIT DISTURBANCE [None]
  - DIZZINESS [None]
  - HEADACHE [None]
  - CONCUSSION [None]
  - FALL [None]
  - WALKING AID USER [None]
  - DRUG DOSE OMISSION [None]
  - VISUAL ACUITY REDUCED [None]
  - KNEE ARTHROPLASTY [None]
  - ARTHRALGIA [None]
